FAERS Safety Report 5297720-6 (Version None)
Quarter: 2007Q2

REPORT INFORMATION
  Report Type: 
  Country: None (occurrence: None)
  Receive Date: 20070412
  Receipt Date: 20070412
  Transmission Date: 20071010
  Serious: Yes (Hospitalization)
  Sender: FDA-Public Use
  Company Number: None

PATIENT
  Sex: Male
  Weight: 111.2 kg

DRUGS (3)
  1. FLUOROURACIL [Suspect]
     Dosage: 6468 MG
  2. LEUCOVORIN CALCIUM [Suspect]
     Dosage: 924 MG
  3. ELOXATIN [Suspect]

REACTIONS (11)
  - CARDIAC FAILURE CONGESTIVE [None]
  - CHEST PAIN [None]
  - DYSAESTHESIA PHARYNX [None]
  - HYPOAESTHESIA [None]
  - MALAISE [None]
  - MUSCLE TIGHTNESS [None]
  - PAIN IN EXTREMITY [None]
  - PARAESTHESIA [None]
  - TROPONIN [None]
  - TROPONIN INCREASED [None]
  - WEIGHT DECREASED [None]
